FAERS Safety Report 9004546 (Version 1)
Quarter: 2012Q4

REPORT INFORMATION
  Report Type: Spontaneous
  Country: IT (occurrence: None)
  Receive Date: 20121227
  Receipt Date: 20121227
  Transmission Date: 20130627
  Serious: Yes (Other)
  Sender: FDA-Public Use
  Company Number: AUR-APL-2012-05527

PATIENT
  Age: 60 Year
  Sex: Male

DRUGS (1)
  1. SIMVASTATIN (SIMVASTATIN) [Suspect]
     Indication: DRUG USE FOR UNKNOWN INDICATION
     Dosage: 20 mg, 1 D
     Route: 048
     Dates: start: 20120701, end: 20121130

REACTIONS (1)
  - Thrombocytopenia [None]
